FAERS Safety Report 14410135 (Version 1)
Quarter: 2018Q1

REPORT INFORMATION
  Report Type: Spontaneous
  Country: US (occurrence: US)
  Receive Date: 20180116
  Receipt Date: 20180116
  Transmission Date: 20180509
  Serious: No
  Sender: FDA-Public Use
  Company Number: None

PATIENT
  Sex: Female

DRUGS (17)
  1. CLARITIN [Concomitant]
     Active Substance: LORATADINE
  2. ZOFRAN [Concomitant]
     Active Substance: ONDANSETRON HYDROCHLORIDE
  3. FIBERCON [Concomitant]
     Active Substance: CALCIUM POLYCARBOPHIL
  4. LYRICA [Concomitant]
     Active Substance: PREGABALIN
  5. PYRIDOXINE [Concomitant]
     Active Substance: PYRIDOXINE
  6. CAPECITABINE 500 MG ACCORD [Suspect]
     Active Substance: CAPECITABINE
     Indication: COLON CANCER
     Route: 048
     Dates: start: 20170614
  7. ELIQUIS [Concomitant]
     Active Substance: APIXABAN
  8. CALTRATE [Concomitant]
     Active Substance: CALCIUM CARBONATE
  9. MULTIVITAMIN [Concomitant]
     Active Substance: VITAMINS
  10. REMERON [Concomitant]
     Active Substance: MIRTAZAPINE
  11. VITAMIN D3 [Concomitant]
     Active Substance: CHOLECALCIFEROL
  12. ENABLEX [Concomitant]
     Active Substance: DARIFENACIN HYDROBROMIDE
  13. LUNESTA [Concomitant]
     Active Substance: ESZOPICLONE
  14. SYNTHROID [Concomitant]
     Active Substance: LEVOTHYROXINE SODIUM
  15. PRILOSEC [Concomitant]
     Active Substance: OMEPRAZOLE MAGNESIUM
  16. CAPECITABINE 500 MG ACCORD [Suspect]
     Active Substance: CAPECITABINE
     Indication: HEPATIC CANCER
     Route: 048
     Dates: start: 20170614
  17. IMITREX [Concomitant]
     Active Substance: SUMATRIPTAN SUCCINATE

REACTIONS (1)
  - Cerebrovascular accident [None]
